FAERS Safety Report 8331563-1 (Version None)
Quarter: 2012Q2

REPORT INFORMATION
  Report Type: 
  Country: None (occurrence: None)
  Receive Date: 20120502
  Receipt Date: 20120426
  Transmission Date: 20120825
  Serious: No
  Sender: FDA-Public Use
  Company Number: US-PFIZER INC-2012092697

PATIENT
  Sex: Female

DRUGS (1)
  1. TOVIAZ [Suspect]
     Dosage: UNK
     Dates: start: 20120411

REACTIONS (4)
  - URINE OUTPUT INCREASED [None]
  - DRY THROAT [None]
  - POLLAKIURIA [None]
  - DRY EYE [None]
